FAERS Safety Report 23318717 (Version 1)
Quarter: 2023Q4

REPORT INFORMATION
  Report Type: Spontaneous
  Country: FR (occurrence: FR)
  Receive Date: 20231220
  Receipt Date: 20231220
  Transmission Date: 20240110
  Serious: Yes (Life-Threatening, Hospitalization, Other)
  Sender: FDA-Public Use
  Company Number: None

PATIENT
  Age: 2 Year
  Sex: Male
  Weight: 10 kg

DRUGS (16)
  1. CLONAZEPAM [Suspect]
     Active Substance: CLONAZEPAM
     Indication: Generalised tonic-clonic seizure
     Route: 048
     Dates: start: 20231114, end: 20231116
  2. CLONAZEPAM [Suspect]
     Active Substance: CLONAZEPAM
     Indication: Dystonia
     Route: 048
     Dates: start: 20231114, end: 20231116
  3. CLONAZEPAM [Suspect]
     Active Substance: CLONAZEPAM
     Indication: Generalised tonic-clonic seizure
     Route: 048
     Dates: start: 20231118, end: 20231120
  4. CLONAZEPAM [Suspect]
     Active Substance: CLONAZEPAM
     Indication: Dystonia
     Route: 048
     Dates: start: 20231118, end: 20231120
  5. CLONAZEPAM [Suspect]
     Active Substance: CLONAZEPAM
     Indication: Generalised tonic-clonic seizure
     Dosage: DAILY DOSE: 1 DROP
     Route: 048
     Dates: end: 20231113
  6. CLONAZEPAM [Suspect]
     Active Substance: CLONAZEPAM
     Indication: Dystonia
     Dosage: DAILY DOSE: 1 DROP
     Route: 048
     Dates: end: 20231113
  7. GENTAMICIN SULFATE [Suspect]
     Active Substance: GENTAMICIN SULFATE
     Indication: Pain
     Dosage: DAILY DOSE: 5 MILLIGRAM/KG
     Route: 042
     Dates: start: 20231120, end: 20231120
  8. CLONIDINE [Suspect]
     Active Substance: CLONIDINE
     Indication: Dystonia
     Dosage: INTRAVENOUS DRIP, 0.15MG/ML?DAILY DOSE: 10 MICROGRAM/KG
     Route: 042
     Dates: start: 20231117, end: 20231117
  9. CLONIDINE [Suspect]
     Active Substance: CLONIDINE
     Indication: Dystonia
     Dosage: SCORED TABLET?DAILY DOSE: 1 MICROGRAM/KG
     Route: 048
     Dates: start: 20231118, end: 20231120
  10. CEFTRIAXONE SODIUM [Suspect]
     Active Substance: CEFTRIAXONE SODIUM
     Indication: Hyperthermia
     Dosage: DAILY DOSE: 100 MILLIGRAM/KG
     Route: 042
     Dates: start: 20231120, end: 20231120
  11. IBUPROFEN [Suspect]
     Active Substance: IBUPROFEN
     Indication: Pain
     Dates: start: 20231118, end: 20231120
  12. VANCOMYCIN HYDROCHLORIDE [Suspect]
     Active Substance: VANCOMYCIN HYDROCHLORIDE
     Indication: Hyperthermia
     Dosage: DAILY DOSE: 40 MILLIGRAM/KG
     Route: 042
     Dates: start: 20231120, end: 20231120
  13. ACETAMINOPHEN [Suspect]
     Active Substance: ACETAMINOPHEN
     Indication: Pain
     Route: 048
     Dates: start: 20231102, end: 20231123
  14. AMITRIPTYLINE HYDROCHLORIDE [Suspect]
     Active Substance: AMITRIPTYLINE HYDROCHLORIDE
     Indication: Dystonia
     Route: 048
     Dates: end: 20231120
  15. DOLIPRANE [Concomitant]
     Active Substance: ACETAMINOPHEN
  16. TRAMADOL [Concomitant]
     Active Substance: TRAMADOL\TRAMADOL HYDROCHLORIDE

REACTIONS (8)
  - Acute kidney injury [Recovered/Resolved]
  - Hyperthermia [Recovered/Resolved]
  - Hepatocellular injury [Recovering/Resolving]
  - Incorrect dose administered [Recovered/Resolved]
  - Accidental overdose [Recovered/Resolved]
  - Bradycardia [Recovered/Resolved]
  - Hypotension [Recovered/Resolved]
  - Off label use [Unknown]

NARRATIVE: CASE EVENT DATE: 20231117
